FAERS Safety Report 8928653 (Version 1)
Quarter: 2012Q4

REPORT INFORMATION
  Report Type: Report from Study
  Country: US (occurrence: US)
  Receive Date: 20121128
  Receipt Date: 20121128
  Transmission Date: 20130627
  Serious: Yes (Hospitalization)
  Sender: FDA-Public Use
  Company Number: US-009507513-1211USA008754

PATIENT
  Age: 52 Year
  Sex: Male
  Weight: 85.2 kg

DRUGS (18)
  1. TEMODAR [Suspect]
     Indication: GLIOBLASTOMA
     Dosage: 75 mg/m2, qd
     Route: 048
     Dates: start: 20091105, end: 20091216
  2. TEMODAR [Suspect]
     Dosage: 200 mg/m2, D1-5
     Route: 048
     Dates: start: 20100105, end: 20100303
  3. TEMODAR [Suspect]
     Dosage: UNK
     Route: 048
  4. TARCEVA [Suspect]
     Indication: GLIOBLASTOMA
     Dosage: 150 mg, qd
     Route: 048
     Dates: start: 20091105, end: 20091118
  5. TARCEVA [Suspect]
     Dosage: UNK, qd
     Route: 048
     Dates: start: 20091119, end: 20100117
  6. BEVACIZUMAB [Suspect]
     Indication: GLIOBLASTOMA
     Dosage: 10 mg/kg, 1 in 2 weeks
     Route: 042
     Dates: start: 20090309, end: 20091204
  7. BEVACIZUMAB [Suspect]
     Dosage: 10 mg/kg, 1 in 2 weeks
     Route: 042
     Dates: start: 20091112, end: 20100302
  8. BEVACIZUMAB [Suspect]
     Dosage: 10 mg/kg, 1 in 2 weeks
     Route: 042
  9. SULFAMETHOXAZOLE (+) TRIMETHOPRIM [Suspect]
     Indication: ANTIFUNGAL PROPHYLAXIS
     Dosage: UNK
     Dates: start: 20100303
  10. COLACE [Concomitant]
     Dosage: UNK
     Dates: start: 200911
  11. KEPPRA [Concomitant]
     Dosage: UNK
     Dates: start: 20091028
  12. SENNA [Concomitant]
     Dosage: UNK
     Dates: start: 20091112
  13. MIRALAX [Concomitant]
     Dosage: UNK
     Dates: start: 20091112
  14. BENADRYL [Concomitant]
     Dosage: UNK
     Dates: start: 20091121
  15. AMBIEN [Concomitant]
     Dosage: UNK
     Dates: start: 20091021
  16. HYDROCORTISONE [Concomitant]
     Dosage: UNK
     Dates: start: 20091117
  17. HYDROXYZINE [Concomitant]
     Dosage: UNK
     Dates: start: 20100122
  18. CLINDAMYCIN [Concomitant]

REACTIONS (3)
  - Convulsion [Unknown]
  - Hypersensitivity [Unknown]
  - Pyrexia [Unknown]
